FAERS Safety Report 7389528-2 (Version None)
Quarter: 2011Q2

REPORT INFORMATION
  Report Type: 
  Country: None (occurrence: None)
  Receive Date: 20110401
  Receipt Date: 20110321
  Transmission Date: 20111010
  Serious: Yes (Other)
  Sender: FDA-Public Use
  Company Number: PHHY2011DE23962

PATIENT
  Age: 13 Year
  Sex: Male
  Weight: 50 kg

DRUGS (3)
  1. DESFERAL [Suspect]
     Indication: THALASSAEMIA BETA
     Dosage: 4 G
  2. BLOOD AND RELATED PRODUCTS [Concomitant]
     Dosage: UNK
  3. DESFERAL [Suspect]
     Dosage: 1500 MG, QD
     Dates: start: 20110320

REACTIONS (7)
  - SOMNOLENCE [None]
  - TREATMENT NONCOMPLIANCE [None]
  - COMA [None]
  - NAUSEA [None]
  - UNRESPONSIVE TO STIMULI [None]
  - METABOLIC ENCEPHALOPATHY [None]
  - VOMITING [None]
